FAERS Safety Report 24946414 (Version 2)
Quarter: 2025Q1

REPORT INFORMATION
  Report Type: Report from Study
  Country: US (occurrence: US)
  Receive Date: 20250210
  Receipt Date: 20250224
  Transmission Date: 20250409
  Serious: Yes (Other)
  Sender: ABBVIE
  Company Number: US-ABBVIE-6118791

PATIENT
  Age: 83 Year
  Sex: Male
  Weight: 84 kg

DRUGS (3)
  1. HUMIRA [Suspect]
     Active Substance: ADALIMUMAB
     Indication: Crohn^s disease
     Dosage: FORM STRENGTH: 40 MG
     Route: 058
     Dates: start: 20230501, end: 20250120
  2. HUMIRA [Suspect]
     Active Substance: ADALIMUMAB
     Dosage: FORM STRENGTH: 40 MG, LAST ADMIN DATE- FEB 2025
     Route: 058
     Dates: start: 20250205
  3. LISINOPRIL [Concomitant]
     Active Substance: LISINOPRIL
     Indication: Hypertrophic cardiomyopathy

REACTIONS (9)
  - Skin squamous cell carcinoma recurrent [Recovered/Resolved]
  - Pyrexia [Recovered/Resolved]
  - Prostatic disorder [Recovering/Resolving]
  - Pruritus [Recovered/Resolved]
  - COVID-19 [Recovered/Resolved]
  - Prostatic specific antigen increased [Not Recovered/Not Resolved]
  - Eczema [Recovering/Resolving]
  - Blood testosterone increased [Recovering/Resolving]
  - Nasopharyngitis [Recovered/Resolved]

NARRATIVE: CASE EVENT DATE: 20230101
